FAERS Safety Report 5215783-0 (Version None)
Quarter: 2007Q1

REPORT INFORMATION
  Report Type: 
  Country: None (occurrence: None)
  Receive Date: 20070123
  Receipt Date: 20070118
  Transmission Date: 20070707
  Serious: Yes (Death)
  Sender: FDA-Public Use
  Company Number: 2007SE00346

PATIENT
  Age: 70 Year

DRUGS (4)
  1. ATACAND [Suspect]
     Route: 048
  2. CALCIUM ANTAGONIST [Suspect]
  3. BETA BLOCKERS [Suspect]
  4. DIURETICS [Suspect]

REACTIONS (1)
  - DEATH [None]
